FAERS Safety Report 24118190 (Version 1)
Quarter: 2024Q3

REPORT INFORMATION
  Report Type: Spontaneous
  Country: US (occurrence: US)
  Receive Date: 20240722
  Receipt Date: 20240722
  Transmission Date: 20241017
  Serious: Yes (Other)
  Sender: AUROBINDO
  Company Number: US-AUROBINDO-AUR-APL-2024-035989

PATIENT
  Age: 89 Year
  Sex: Male

DRUGS (5)
  1. DIGOXIN [Suspect]
     Active Substance: DIGOXIN
     Indication: Hypertensive heart disease
     Dosage: UNK
     Route: 065
  2. DIGOXIN [Suspect]
     Active Substance: DIGOXIN
     Indication: Cardiac failure congestive
  3. ESMOLOL [Suspect]
     Active Substance: ESMOLOL HYDROCHLORIDE
     Indication: Atrial tachycardia
     Dosage: 25 MICROGRAM/KILOGRAM, PER MINUTE
     Route: 042
  4. ESMOLOL [Suspect]
     Active Substance: ESMOLOL HYDROCHLORIDE
     Dosage: 50 MICROGRAM/KILOGRAM, PER MINUTE (FIVE MINUTES LATER THE INFUSION WAS INCREASED)
     Route: 042
  5. ESMOLOL [Suspect]
     Active Substance: ESMOLOL HYDROCHLORIDE
     Dosage: 100 MICROGRAM/KILOGRAM, PER MINUTE (FIVE MINUTES LATER THE INFUSION WAS INCREASED)
     Route: 042

REACTIONS (3)
  - Atrial tachycardia [Not Recovered/Not Resolved]
  - Generalised tonic-clonic seizure [Recovered/Resolved]
  - Somnolence [Recovered/Resolved]
